FAERS Safety Report 8267910 (Version 6)
Quarter: 2013Q4

REPORT INFORMATION
  Report Type: Spontaneous
  Country: US (occurrence: US)
  Receive Date: 20111129
  Receipt Date: 20131106
  Transmission Date: 20140711
  Serious: Yes (Hospitalization, Other)
  Sender: FDA-Public Use
  Company Number: US-ROCHE-792919

PATIENT
  Age: 18 Year
  Sex: Male
  Weight: 79.45 kg

DRUGS (2)
  1. ACCUTANE [Suspect]
     Indication: ACNE
     Route: 065
     Dates: start: 19980928, end: 19990708
  2. DEPAKOTE [Concomitant]
     Route: 065

REACTIONS (12)
  - Colitis [Unknown]
  - Bipolar disorder [Unknown]
  - Suicidal ideation [Unknown]
  - Crohn^s disease [Unknown]
  - Inflammatory bowel disease [Unknown]
  - Intestinal haemorrhage [Unknown]
  - Depression [Unknown]
  - Suicide attempt [Unknown]
  - Irritable bowel syndrome [Unknown]
  - Epistaxis [Unknown]
  - Rash [Unknown]
  - Blood triglycerides increased [Unknown]
